FAERS Safety Report 10663541 (Version 1)
Quarter: 2014Q4

REPORT INFORMATION
  Report Type: Report from Study
  Country: US (occurrence: US)
  Receive Date: 20141219
  Receipt Date: 20141219
  Transmission Date: 20150529
  Serious: Yes (Hospitalization, Other)
  Sender: FDA-Public Use
  Company Number: US-GILEAD-2014-0126353

PATIENT
  Age: 71 Year
  Sex: Male
  Weight: 106.4 kg

DRUGS (28)
  1. METOPROLOL [Concomitant]
     Active Substance: METOPROLOL
  2. MIRTAZAPINE. [Concomitant]
     Active Substance: MIRTAZAPINE
  3. COUMADIN [Concomitant]
     Active Substance: WARFARIN SODIUM
  4. AZTREONAM LYSINE [Suspect]
     Active Substance: AZTREONAM LYSINE
     Dosage: 75 MG, UNK
     Route: 055
     Dates: start: 20141113, end: 20141201
  5. ASCORBIC ACID. [Concomitant]
     Active Substance: ASCORBIC ACID
  6. FOLIC ACID. [Concomitant]
     Active Substance: FOLIC ACID
  7. POLYETHYLENE GLYCOL [Concomitant]
     Active Substance: POLYETHYLENE GLYCOLS
  8. TACROLIMUS. [Concomitant]
     Active Substance: TACROLIMUS
     Dosage: UNK
  9. AZTREONAM LYSINE [Suspect]
     Active Substance: AZTREONAM LYSINE
     Indication: IDIOPATHIC PULMONARY FIBROSIS
     Dosage: 75 MG, TID
     Route: 055
     Dates: start: 20140724, end: 20140820
  10. AZTREONAM LYSINE [Suspect]
     Active Substance: AZTREONAM LYSINE
     Dosage: 75 MG, TID
     Route: 055
     Dates: start: 20140918, end: 20141015
  11. DOCUSATE [Concomitant]
     Active Substance: DOCUSATE
  12. ONDANSETRON [Concomitant]
     Active Substance: ONDANSETRON
  13. ALUMINIUM HYDROXIDE W/MAGNESIUM HYD/00416501/ [Concomitant]
  14. CALCIUM CARBONATE. [Concomitant]
     Active Substance: CALCIUM CARBONATE
  15. CIPROFLOXACIN. [Concomitant]
     Active Substance: CIPROFLOXACIN
  16. SODIUM CHLORIDE. [Concomitant]
     Active Substance: SODIUM CHLORIDE
  17. BISACODYL. [Concomitant]
     Active Substance: BISACODYL
  18. FUROSEMIDE. [Concomitant]
     Active Substance: FUROSEMIDE
  19. PREDNISONE. [Concomitant]
     Active Substance: PREDNISONE
  20. ACETAMINOPHEN. [Concomitant]
     Active Substance: ACETAMINOPHEN
  21. MAGNESIUM HYDROXIDE. [Concomitant]
     Active Substance: MAGNESIUM HYDROXIDE
  22. PANTOPRAZOLE [Concomitant]
     Active Substance: PANTOPRAZOLE SODIUM
  23. ESCITALOPRAM [Concomitant]
     Active Substance: ESCITALOPRAM OXALATE
  24. MULTIVITAMIN                       /07504101/ [Concomitant]
     Active Substance: VITAMINS
  25. METOLAZONE. [Concomitant]
     Active Substance: METOLAZONE
  26. HYDROCODONE ACETAMINOPHEN [Concomitant]
     Active Substance: ACETAMINOPHEN\HYDROCODONE BITARTRATE
  27. VALGANCICLOVIR [Concomitant]
     Active Substance: VALGANCICLOVIR
  28. CELLCEPT [Concomitant]
     Active Substance: MYCOPHENOLATE MOFETIL\MYCOPHENOLATE MOFETIL HYDROCHLORIDE
     Dosage: UNK

REACTIONS (2)
  - Pneumothorax [Recovered/Resolved]
  - Cough [Recovered/Resolved]

NARRATIVE: CASE EVENT DATE: 20141203
